FAERS Safety Report 21507104 (Version 4)
Quarter: 2023Q1

REPORT INFORMATION
  Report Type: Report from Study
  Country: US (occurrence: US)
  Receive Date: 20221026
  Receipt Date: 20230330
  Transmission Date: 20230418
  Serious: Yes (Other)
  Sender: FDA-Public Use
  Company Number: US-ABBVIE-4172984

PATIENT
  Sex: Female

DRUGS (7)
  1. VENCLEXTA [Suspect]
     Active Substance: VENETOCLAX
     Indication: Chronic lymphocytic leukaemia
     Dosage: TAKE 4 TABLET(S) BY MOUTH ONCE DAILY WITH A MEAL AND WATER AT THE SAME TIME EACH DAY.?FORM STRENG...
     Route: 048
  2. VENCLEXTA [Suspect]
     Active Substance: VENETOCLAX
     Indication: Chronic lymphocytic leukaemia
     Dosage: THEN, 200MG(2X100MG TABS) DAILY WEEK 4.
     Route: 048
  3. VENCLEXTA [Suspect]
     Active Substance: VENETOCLAX
     Indication: Chronic lymphocytic leukaemia
     Dosage: THEN, 200MG(2X100MG TABS) DAILY WEEK 4.?FORM STRENGTH 100 MILLIGRAM
     Route: 048
  4. VENCLEXTA [Suspect]
     Active Substance: VENETOCLAX
     Indication: Chronic lymphocytic leukaemia
     Dosage: TAKE 4 CAPSULE(S) BY MOUTH DAILY WITH A MEAL AND WATER AT THE SAME TIME EACH DAY.?FORM STRENGTH 1...
     Route: 048
  5. VENCLEXTA [Suspect]
     Active Substance: VENETOCLAX
     Indication: Chronic lymphocytic leukaemia
     Dosage: STARTING PACK; TAKE 20MG(2X10MG TABS) BY MOUTH EVERY DAY ON WEEK 1
     Route: 048
  6. VENCLEXTA [Suspect]
     Active Substance: VENETOCLAX
     Indication: Chronic lymphocytic leukaemia
     Dosage: THEN, 50MG(1X50MG TAB) DAILY BY MOUTH WEEK 2.
     Route: 048
  7. VENCLEXTA [Suspect]
     Active Substance: VENETOCLAX
     Indication: Chronic lymphocytic leukaemia
     Dosage: TAKE 4 TABLET(S) BY MOUTH ONCE DAILY WITH A MEAL AND WATER AT THE SAME TIME EACH DAY.
     Route: 048

REACTIONS (10)
  - Spinal compression fracture [Unknown]
  - Back pain [Unknown]
  - Fall [Unknown]
  - Pain [Unknown]
  - Swelling [Unknown]
  - COVID-19 [Unknown]
  - Urinary incontinence [Unknown]
  - Urine odour abnormal [Unknown]
  - Decreased appetite [Unknown]
  - Feeling abnormal [Unknown]
